FAERS Safety Report 8319364-1 (Version None)
Quarter: 2012Q2

REPORT INFORMATION
  Report Type: 
  Country: None (occurrence: None)
  Receive Date: 20120427
  Receipt Date: 20120423
  Transmission Date: 20120825
  Serious: Yes (Life-Threatening, Other)
  Sender: FDA-Public Use
  Company Number: ZA-BRISTOL-MYERS SQUIBB COMPANY-16492498

PATIENT
  Age: 44 Year
  Sex: Female
  Weight: 50 kg

DRUGS (3)
  1. EFAVIRENZ [Suspect]
     Indication: HIV INFECTION
     Dosage: AT BED TIME,LAST DOSE:25MAR2012.
     Route: 048
     Dates: start: 20120302
  2. TRUVADA [Suspect]
     Indication: HIV INFECTION
     Dosage: 1DF=200/300MG, LAST DOSE:25-MAR-2012.
     Route: 048
     Dates: start: 20120302
  3. ISONIAZID [Suspect]
     Indication: PROPHYLAXIS
     Dosage: LAST DOSE:26MAR2012, ADMINISTRATION:EVERY DAY
     Route: 048
     Dates: start: 20120302

REACTIONS (2)
  - HEPATITIS [None]
  - DEHYDRATION [None]
